FAERS Safety Report 14651699 (Version 2)
Quarter: 2019Q1

REPORT INFORMATION
  Report Type: Spontaneous
  Country: IT (occurrence: IT)
  Receive Date: 20180317
  Receipt Date: 20190311
  Transmission Date: 20190417
  Serious: Yes (Other)
  Sender: FDA-Public Use
  Company Number: IT-AUROBINDO-AUR-APL-2018-013986

PATIENT
  Age: 88 Year
  Sex: Female

DRUGS (7)
  1. RISPERIDONE. [Suspect]
     Active Substance: RISPERIDONE
     Indication: DEMENTIA
     Dosage: 2 DOSAGE FORM, ONCE A DAY
     Route: 048
  2. PLAUNAZIDE [Concomitant]
     Active Substance: HYDROCHLOROTHIAZIDE\OLMESARTAN MEDOXOMIL
     Indication: HYPERTENSION
     Dosage: 1 DOSAGE FORM
     Route: 048
  3. LIMPIDEX [Concomitant]
     Active Substance: LANSOPRAZOLE
     Indication: GASTRIC ULCER
     Dosage: 1 DOSAGE FORM
     Route: 048
  4. RISPERIDONE. [Suspect]
     Active Substance: RISPERIDONE
     Route: 048
  5. CARDIOASPIRIN [Concomitant]
     Active Substance: ASPIRIN
     Indication: THROMBOSIS PROPHYLAXIS
     Dosage: 1 DOSAGE FORM
     Route: 048
  6. LOBIVON [Concomitant]
     Active Substance: NEBIVOLOL HYDROCHLORIDE
     Indication: HYPERTENSION
     Dosage: 1 DOSAGE FORM
     Route: 048
  7. MUTABON [Concomitant]
     Active Substance: AMITRIPTYLINE HYDROCHLORIDE\PERPHENAZINE
     Indication: INSOMNIA
     Dosage: 1 DOSAGE FORM
     Route: 048

REACTIONS (5)
  - Tremor [Recovering/Resolving]
  - Headache [Recovering/Resolving]
  - Drug intolerance [Recovering/Resolving]
  - Chest pain [Recovering/Resolving]
  - Malaise [Recovering/Resolving]

NARRATIVE: CASE EVENT DATE: 20180225
